FAERS Safety Report 6985977-2 (Version None)
Quarter: 2010Q3

REPORT INFORMATION
  Report Type: 
  Country: None (occurrence: None)
  Receive Date: 20100915
  Receipt Date: 20100907
  Transmission Date: 20110219
  Serious: Yes (Hospitalization)
  Sender: FDA-Public Use
  Company Number: US-ELI_LILLY_AND_COMPANY-US201008001898

PATIENT
  Sex: Female
  Weight: 65.306 kg

DRUGS (17)
  1. BYETTA [Suspect]
     Indication: TYPE 2 DIABETES MELLITUS
     Dosage: 5 U, 2/D
     Route: 058
     Dates: start: 20080619, end: 20100527
  2. LEXAPRO [Concomitant]
     Dosage: 20 MG, DAILY (1/D)
  3. BUSPIRONE HCL [Concomitant]
     Dosage: 30 MG, EACH EVENING
  4. BUSPIRONE HCL [Concomitant]
     Dosage: 15 MG, EACH EVENING
  5. LORAZEPAM [Concomitant]
     Dosage: 0.5 MG, 4/D
  6. DIOVAN HCT [Concomitant]
     Dosage: 320 MG, DAILY (1/D)
     Route: 048
  7. DIOVAN HCT [Concomitant]
     Dosage: 160 MG, DAILY (1/D)
  8. LIPITOR [Concomitant]
     Dosage: 20 MG, DAILY (1/D)
     Route: 048
  9. LIPITOR [Concomitant]
     Dosage: 10 MG, DAILY (1/D)
  10. NEXIUM [Concomitant]
     Dosage: 40 MG, DAILY (1/D)
  11. ASPIRIN [Concomitant]
     Dosage: 81 MG, DAILY (1/D)
  12. AMBIEN CR [Concomitant]
     Dosage: 12.5 MG, AS NEEDED
  13. GABAPENTIN [Concomitant]
     Dosage: 300 MG, EACH EVENING
  14. GEODON [Concomitant]
     Dosage: 40 MG, EACH EVENING
     Route: 048
  15. METFORMIN [Concomitant]
     Indication: TYPE 2 DIABETES MELLITUS
     Dosage: 1000 MG, 2/D
  16. ABILIFY [Concomitant]
     Dosage: 2 MG, DAILY (1/D)
     Route: 048
  17. PROTONIX [Concomitant]
     Dosage: 40 MG, DAILY (1/D)

REACTIONS (7)
  - BLEEDING TIME PROLONGED [None]
  - DEHYDRATION [None]
  - DRUG DOSE OMISSION [None]
  - NAUSEA [None]
  - RENAL FAILURE ACUTE [None]
  - TUBULOINTERSTITIAL NEPHRITIS [None]
  - WEIGHT DECREASED [None]
